FAERS Safety Report 24635495 (Version 1)
Quarter: 2024Q4

REPORT INFORMATION
  Report Type: Spontaneous
  Country: US (occurrence: US)
  Receive Date: 20241119
  Receipt Date: 20241119
  Transmission Date: 20250115
  Serious: No
  Sender: ABBVIE
  Company Number: US-ABBVIE-5999067

PATIENT
  Sex: Female

DRUGS (1)
  1. REFRESH RELIEVA PF XTRA [Suspect]
     Active Substance: CARBOXYMETHYLCELLULOSE SODIUM\GLYCERIN
     Indication: Macular degeneration
     Dosage: CMC 0.5% AND GLYCERIN 0.9% MDPF?DOSAGE: 10 ML
     Route: 047

REACTIONS (4)
  - Eye irritation [Unknown]
  - Product container issue [Not Recovered/Not Resolved]
  - Eye irritation [Unknown]
  - Ocular hyperaemia [Unknown]
